FAERS Safety Report 23772704 (Version 1)
Quarter: 2024Q2

REPORT INFORMATION
  Report Type: Other
  Country: CA (occurrence: CA)
  Receive Date: 20240423
  Receipt Date: 20240423
  Transmission Date: 20240716
  Serious: Yes (Hospitalization, Other)
  Sender: FDA-Public Use
  Company Number: CA-Bion-012870

PATIENT
  Age: 33 Year
  Sex: Male

DRUGS (1)
  1. NAPROXEN SODIUM [Suspect]
     Active Substance: NAPROXEN\NAPROXEN SODIUM
     Indication: Plantar fasciitis

REACTIONS (2)
  - Nephrotic syndrome [Recovered/Resolved]
  - Glomerulonephritis minimal lesion [Recovered/Resolved]
